FAERS Safety Report 7244611 (Version 2)
Quarter: 2014Q2

REPORT INFORMATION
  Report Type: Spontaneous
  Country: NL (occurrence: None)
  Receive Date: 20091229
  Receipt Date: 20140416
  Transmission Date: 20141212
  Serious: Yes (Hospitalization, Disabling, Other)
  Sender: FDA-Public Use
  Company Number: AUR-APL-2009-01566

PATIENT
  Age: 71 Year
  Sex: Male

DRUGS (2)
  1. CIPROFLOXACIN [Suspect]
     Indication: LOCALISED INFECTION
     Dosage: 400MG, BID, IV
     Route: 042
  2. CLINDAMYCIN [Suspect]
     Indication: INFECTION
     Dosage: 600MG, TID, IV
     Route: 042

REACTIONS (6)
  - Pruritus [None]
  - Burning sensation [None]
  - Purpura [None]
  - Erythema [None]
  - Vasculitis [None]
  - Haemorrhage [None]
